FAERS Safety Report 8491987-9 (Version None)
Quarter: 2012Q2

REPORT INFORMATION
  Report Type: 
  Country: None (occurrence: None)
  Receive Date: 20120627
  Receipt Date: 20120611
  Transmission Date: 20120825
  Serious: Yes (Other)
  Sender: FDA-Public Use
  Company Number: 1315849

PATIENT
  Sex: Male

DRUGS (3)
  1. FENTANYL CITRATE [Suspect]
     Dosage: UNKNOWN
  2. VERSED [Suspect]
     Dosage: UNKNOWN
  3. DEXMEDETOMIDINE HYDROCHLORIDE [Suspect]
     Dosage: UNKNOWN

REACTIONS (2)
  - POST-TRAUMATIC STRESS DISORDER [None]
  - FLASHBACK [None]
